FAERS Safety Report 23304577 (Version 1)
Quarter: 2023Q4

REPORT INFORMATION
  Report Type: Other
  Country: GB (occurrence: GB)
  Receive Date: 20231218
  Receipt Date: 20231218
  Transmission Date: 20240110
  Serious: Yes (Other)
  Sender: FDA-Public Use
  Company Number: GB-GLENMARK PHARMACEUTICALS-2023GMK087235

PATIENT

DRUGS (7)
  1. MOMETASONE FUROATE [Suspect]
     Active Substance: MOMETASONE FUROATE
     Indication: Ill-defined disorder
     Dosage: UNK
     Route: 065
     Dates: start: 20231204
  2. MOMETASONE [Concomitant]
     Active Substance: MOMETASONE
     Indication: Ill-defined disorder
     Dosage: 2 DOSAGE FORM, OD (TWO PUFFS INTO EACH NOSTRIL)
     Route: 045
     Dates: start: 20231122
  3. ESTRADIOL [Concomitant]
     Active Substance: ESTRADIOL
     Indication: Ill-defined disorder
     Dosage: UNK, OD, APPLY 3 PUMPS ONCE DAILY TO THE INSIDE OF THE T...
     Route: 065
     Dates: start: 20220513
  4. OMEPRAZOLE [Concomitant]
     Active Substance: OMEPRAZOLE
     Indication: Ill-defined disorder
     Dosage: 1 DOSAGE FORM, QD (TAKE ONE CAPSULE DAILY. TAKE ALONGSIDE ANTI-INF...)
     Route: 065
     Dates: start: 20231130
  5. PROGESTERONE [Concomitant]
     Active Substance: PROGESTERONE
     Indication: Ill-defined disorder
     Dosage: (TAKE TWO TABLETS AT NIGHT ON THE LAST 12 DAYS O...)
     Route: 065
     Dates: start: 20220513
  6. DIBUCAINE HYDROCHLORIDE\PREDNISOLONE [Concomitant]
     Active Substance: DIBUCAINE HYDROCHLORIDE\PREDNISOLONE
     Indication: Ill-defined disorder
     Dosage: ONE AT NIGHT FOR 10-12 NIGHTS IN A ROW
     Route: 065
     Dates: start: 20231116, end: 20231128
  7. VAGIRUX [Concomitant]
     Indication: Ill-defined disorder
     Dosage: UNK,USE TWICE WEEKLY
     Route: 065
     Dates: start: 20220708

REACTIONS (2)
  - Rash [Recovered/Resolved]
  - Dizziness [Unknown]

NARRATIVE: CASE EVENT DATE: 20231204
